FAERS Safety Report 26064027 (Version 1)
Quarter: 2025Q4

REPORT INFORMATION
  Report Type: Spontaneous
  Country: EU (occurrence: EU)
  Receive Date: 20251119
  Receipt Date: 20251119
  Transmission Date: 20260118
  Serious: Yes (Death, Hospitalization, Other)
  Sender: SANOFI AVENTIS
  Company Number: None

PATIENT
  Age: 63 Year
  Sex: Female
  Weight: 60 kg

DRUGS (20)
  1. TAXOTERE [Suspect]
     Active Substance: DOCETAXEL
     Indication: Breast cancer
     Dosage: UNK UNK, TOTAL
     Route: 042
     Dates: start: 20160321, end: 20160321
  2. DOCETAXEL [Suspect]
     Active Substance: DOCETAXEL
     Indication: Breast cancer stage III
     Dosage: 120 MG (75 MG/M2 SOIT)
     Route: 042
     Dates: start: 20160321, end: 20160321
  3. CYCLOPHOSPHAMIDE [Suspect]
     Active Substance: CYCLOPHOSPHAMIDE
     Indication: Breast cancer stage III
     Dosage: 940 MG (600 MG/M2 SOIT)
     Dates: start: 20160321
  4. SITAGLIPTIN [Concomitant]
     Active Substance: SITAGLIPTIN
     Indication: Diabetes mellitus
     Dosage: 2 DF, QD
     Route: 048
  5. METOCLOPRAMIDE [Concomitant]
     Active Substance: METOCLOPRAMIDE
     Indication: Premedication
     Dosage: 10 MG, PRN (BEFORE MEAL IF NAUSEA)
     Route: 048
  6. METFORMIN HYDROCHLORIDE [Concomitant]
     Active Substance: METFORMIN HYDROCHLORIDE
     Indication: Diabetes mellitus
     Dosage: 2000 MG, QD
     Route: 048
  7. LEVOTHYROXINE [Concomitant]
     Active Substance: LEVOTHYROXINE
     Indication: Hypothyroidism
     Dosage: 75 UG, QD
     Route: 048
  8. DEXTROSE [Concomitant]
     Active Substance: DEXTROSE MONOHYDRATE
     Indication: Premedication
     Dosage: UNK
     Route: 042
  9. METHYLPREDNISOLONE [Concomitant]
     Active Substance: METHYLPREDNISOLONE
     Indication: Premedication
     Dosage: 120MG IN 20ML OF SODIUM CHLORIDE 0.9%
     Route: 042
     Dates: start: 20160321, end: 20160321
  10. GRANISETRON [Concomitant]
     Active Substance: GRANISETRON
     Indication: Premedication
     Dosage: 1 DF IN THE MORNING AND 1 DF IN THE EVENING ON THE DAY OF DOCETAXEL
     Route: 048
     Dates: start: 20160321, end: 20160321
  11. ONDANSETRON [Concomitant]
     Active Substance: ONDANSETRON
     Indication: Premedication
     Dosage: 1 DF, QD
     Route: 048
     Dates: start: 20160321, end: 20160321
  12. PREDNISONE [Concomitant]
     Active Substance: PREDNISONE
     Indication: Premedication
     Dosage: 60 MG, QD
     Route: 048
     Dates: start: 20160321, end: 20160321
  13. METHOTREXATE [Concomitant]
     Active Substance: METHOTREXATE
     Dosage: 10 MG, QD
     Route: 042
  14. FOLIC ACID [Concomitant]
     Active Substance: FOLIC ACID
     Dosage: 25 MG, QW
     Route: 048
  15. ACETAMINOPHEN [Concomitant]
     Active Substance: ACETAMINOPHEN
     Dosage: 1 G, PRN (4 TIMES DAILY IF NEEDED)
     Route: 048
  16. MONTELUKAST [Concomitant]
     Active Substance: MONTELUKAST
     Dosage: 10 MG, QD
     Route: 048
  17. ALBUTEROL [Concomitant]
     Active Substance: ALBUTEROL
     Indication: Asthma
     Dosage: UNK UNK, PRN (DOSE:2 PUFF(S)
     Route: 048
  18. OMEPRAZOLE [Concomitant]
     Active Substance: OMEPRAZOLE
     Dosage: 20 MG, QD
     Route: 048
  19. IRBESARTAN [Concomitant]
     Active Substance: IRBESARTAN
     Dosage: 300 MG, QD
     Route: 048
  20. ATORVASTATIN [Concomitant]
     Active Substance: ATORVASTATIN
     Dosage: 1 DF, QD
     Route: 048

REACTIONS (13)
  - Abdominal pain [Fatal]
  - Diarrhoea [Fatal]
  - Congenital aplasia [Fatal]
  - Large intestine infection [Fatal]
  - Intestinal perforation [Fatal]
  - Large intestine infection [Fatal]
  - Agranulocytosis [Fatal]
  - Acute kidney injury [Fatal]
  - Intestinal obstruction [Fatal]
  - Septic shock [Fatal]
  - Cardio-respiratory arrest [Fatal]
  - Gastrointestinal haemorrhage [Fatal]
  - Haematemesis [Fatal]

NARRATIVE: CASE EVENT DATE: 20160101
